FAERS Safety Report 23967037 (Version 1)
Quarter: 2024Q2

REPORT INFORMATION
  Report Type: Spontaneous
  Country: CN (occurrence: CN)
  Receive Date: 20240612
  Receipt Date: 20240612
  Transmission Date: 20240715
  Serious: Yes (Other)
  Sender: FDA-Public Use
  Company Number: CN-FreseniusKabi-FK202409120

PATIENT
  Age: 50 Year
  Sex: Female
  Weight: 70 kg

DRUGS (2)
  1. OMEGAVEN [Suspect]
     Active Substance: FISH OIL
     Indication: Symptomatic treatment
     Dosage: FORM OF ADMIN: INJECTION
     Route: 041
     Dates: start: 20240525, end: 20240530
  2. EGG PHOSPHOLIPIDS\GLYCERIN\SOYBEAN OIL [Suspect]
     Active Substance: EGG PHOSPHOLIPIDS\GLYCERIN\SOYBEAN OIL
     Indication: Symptomatic treatment
     Dosage: FOA: INJECTION
     Route: 041
     Dates: start: 20240525, end: 20240530

REACTIONS (1)
  - Hepatic enzyme increased [Unknown]

NARRATIVE: CASE EVENT DATE: 20240528
